FAERS Safety Report 17725603 (Version 1)
Quarter: 2020Q2

REPORT INFORMATION
  Report Type: Report from Study
  Country: US (occurrence: US)
  Receive Date: 20200429
  Receipt Date: 20200429
  Transmission Date: 20200714
  Serious: Yes (Hospitalization)
  Sender: FDA-Public Use
  Company Number: US-ACTELION-A-NJ2018-180280

PATIENT
  Sex: Female
  Weight: 79.82 kg

DRUGS (5)
  1. OPSUMIT [Suspect]
     Active Substance: MACITENTAN
     Indication: PULMONARY ARTERIAL HYPERTENSION
     Dosage: 10 MG, QD
     Route: 048
  2. UPTRAVI [Suspect]
     Active Substance: SELEXIPAG
     Indication: PULMONARY ARTERIAL HYPERTENSION
     Dosage: 800 MCG, BID
     Route: 048
  3. OXYGEN. [Concomitant]
     Active Substance: OXYGEN
  4. UPTRAVI [Suspect]
     Active Substance: SELEXIPAG
     Dosage: 600 MCG, BID
     Route: 048
  5. UPTRAVI [Suspect]
     Active Substance: SELEXIPAG
     Dosage: 600 MCG, BID
     Route: 048

REACTIONS (12)
  - Headache [Unknown]
  - Oxygen consumption increased [Unknown]
  - Obsessive-compulsive disorder [Unknown]
  - Stress [Unknown]
  - Dysphagia [Unknown]
  - Product dose omission [Unknown]
  - Pneumonia bacterial [Unknown]
  - Dyspnoea [Unknown]
  - Myalgia [Unknown]
  - Dry throat [Unknown]
  - Bone pain [Unknown]
  - Diarrhoea [Unknown]
